FAERS Safety Report 7541643-6 (Version None)
Quarter: 2011Q2

REPORT INFORMATION
  Report Type: 
  Country: None (occurrence: None)
  Receive Date: 20110613
  Receipt Date: 20110601
  Transmission Date: 20111010
  Serious: Yes (Hospitalization, Other)
  Sender: FDA-Public Use
  Company Number: US-JNJFOC-20110602492

PATIENT
  Age: 52 Year
  Sex: Female
  Weight: 78.02 kg

DRUGS (11)
  1. CHANTIX [Suspect]
     Route: 048
     Dates: start: 20110513
  2. LEVAQUIN [Suspect]
     Indication: OSTEOMYELITIS
     Route: 048
     Dates: end: 20110415
  3. CALCIUM CARBONATE [Concomitant]
     Indication: PRODUCT USED FOR UNKNOWN INDICATION
     Route: 065
  4. AVELOX [Suspect]
     Indication: CELLULITIS
     Route: 065
     Dates: end: 20110415
  5. VITAMIN D [Concomitant]
     Indication: PRODUCT USED FOR UNKNOWN INDICATION
     Route: 065
  6. MULTI-VITAMINS [Concomitant]
     Indication: PRODUCT USED FOR UNKNOWN INDICATION
     Route: 065
  7. LEVAQUIN [Suspect]
     Indication: CELLULITIS
     Route: 048
     Dates: end: 20110415
  8. CHANTIX [Suspect]
     Route: 048
     Dates: start: 20090101, end: 20090101
  9. CHANTIX [Suspect]
     Indication: SMOKING CESSATION THERAPY
     Route: 048
     Dates: end: 20110415
  10. AVELOX [Suspect]
     Indication: OSTEOMYELITIS
     Route: 065
     Dates: end: 20110415
  11. FEMARA [Concomitant]
     Indication: BREAST CANCER
     Route: 065

REACTIONS (5)
  - HEART RATE INCREASED [None]
  - DIZZINESS [None]
  - LIMB OPERATION [None]
  - ABDOMINAL PAIN [None]
  - ABDOMINAL DISTENSION [None]
